FAERS Safety Report 7935291-3 (Version None)
Quarter: 2011Q4

REPORT INFORMATION
  Report Type: 
  Country: None (occurrence: None)
  Receive Date: 20111122
  Receipt Date: 20111111
  Transmission Date: 20120403
  Serious: Yes (Hospitalization)
  Sender: FDA-Public Use
  Company Number: CA-ELI_LILLY_AND_COMPANY-CA201111004180

PATIENT
  Age: 63 Year
  Sex: Female

DRUGS (16)
  1. OMEPRAZOLE [Concomitant]
  2. VITAMIN D [Concomitant]
  3. ANALGESICS [Concomitant]
  4. FORTEO [Suspect]
     Indication: OSTEOPOROSIS
     Dosage: 20 UG, QD
     Route: 058
     Dates: start: 20110703
  5. PREDNISONE TAB [Concomitant]
  6. HUMALOG [Concomitant]
  7. METFORMIN HCL [Concomitant]
  8. LEVOTHYROXINE SODIUM [Concomitant]
  9. NOVOSPIROTON [Concomitant]
  10. INSULIN [Concomitant]
  11. DILANTIN [Concomitant]
  12. SINGULAIR [Concomitant]
  13. OXYCONTIN [Concomitant]
  14. GABAPENTIN [Concomitant]
  15. TEMAZEPAM [Concomitant]
  16. FUROSEMIDE [Concomitant]

REACTIONS (4)
  - SURGERY [None]
  - BLOOD CALCIUM INCREASED [None]
  - WHITE BLOOD CELL COUNT INCREASED [None]
  - COMMUNICATION DISORDER [None]
